FAERS Safety Report 9858527 (Version 1)
Quarter: 2014Q1

REPORT INFORMATION
  Report Type: Spontaneous
  Country: US (occurrence: US)
  Receive Date: 20140131
  Receipt Date: 20140131
  Transmission Date: 20141002
  Serious: Yes (Hospitalization)
  Sender: FDA-Public Use
  Company Number: US-NOVOPROD-399128

PATIENT
  Age: 57 Year
  Sex: Male

DRUGS (6)
  1. VICTOZA [Suspect]
     Indication: TYPE 2 DIABETES MELLITUS
     Dosage: UNK
     Route: 058
     Dates: start: 20130620
  2. METFORMIN [Concomitant]
     Indication: TYPE 2 DIABETES MELLITUS
  3. SIMVASTATIN [Concomitant]
     Indication: HYPERLIPIDAEMIA
  4. PANTOPRAZOLE [Concomitant]
     Indication: GASTROOESOPHAGEAL REFLUX DISEASE
  5. RAMIPRIL [Concomitant]
     Indication: HYPERTENSION
  6. LAMICTAL [Concomitant]
     Indication: CONVULSION

REACTIONS (1)
  - Myocardial infarction [Recovered/Resolved]
